FAERS Safety Report 19003730 (Version 1)
Quarter: 2021Q1

REPORT INFORMATION
  Report Type: Spontaneous
  Country: US (occurrence: US)
  Receive Date: 20210312
  Receipt Date: 20210312
  Transmission Date: 20210420
  Serious: No
  Sender: FDA-Public Use
  Company Number: US-ELI_LILLY_AND_COMPANY-US202103002260

PATIENT
  Age: 83 Year
  Sex: Male

DRUGS (4)
  1. HUMALOG MIX75/25 [Suspect]
     Active Substance: INSULIN LISPRO
     Dosage: UNK UNK, PRN (4?10 UNITS, DEPENDS ON DIET))
     Route: 058
  2. HUMALOG KWIKPEN [Suspect]
     Active Substance: INSULIN LISPRO
     Indication: TYPE 2 DIABETES MELLITUS
     Dosage: UNK UNK, UNKNOWN
     Route: 058
  3. HUMALOG MIX75/25 [Suspect]
     Active Substance: INSULIN LISPRO
     Dosage: UNK UNK, PRN (4?10 UNITS, DEPENDS ON DIET))
     Route: 058
  4. HUMALOG MIX75/25 [Suspect]
     Active Substance: INSULIN LISPRO
     Indication: TYPE 2 DIABETES MELLITUS
     Dosage: UNK UNK, PRN (4?10 UNITS, DEPENDS ON DIET)
     Route: 058

REACTIONS (10)
  - Dementia [Unknown]
  - Hypoacusis [Not Recovered/Not Resolved]
  - Intercepted product selection error [Unknown]
  - Mobility decreased [Unknown]
  - Fall [Unknown]
  - Visual impairment [Not Recovered/Not Resolved]
  - Blood glucose decreased [Recovered/Resolved]
  - Nervousness [Not Recovered/Not Resolved]
  - Liver disorder [Unknown]
  - Memory impairment [Unknown]

NARRATIVE: CASE EVENT DATE: 202002
